FAERS Safety Report 11168429 (Version 1)
Quarter: 2015Q2

REPORT INFORMATION
  Report Type: Report from Study
  Country: JP (occurrence: JP)
  Receive Date: 20150605
  Receipt Date: 20150605
  Transmission Date: 20150821
  Serious: Yes (Other)
  Sender: FDA-Public Use
  Company Number: JP-GSKJP-JP2015JPN072634AA

PATIENT
  Age: 66 Year
  Sex: Female
  Weight: 53.2 kg

DRUGS (3)
  1. TRASTUZUMAB [Suspect]
     Active Substance: TRASTUZUMAB
     Indication: BREAST CANCER
     Dosage: INITIAL DOSE: 4MG/KG, FROM SECOND DOSE: 2MG/KG, WE
     Route: 042
     Dates: start: 20090331, end: 20090616
  2. TYKERB [Suspect]
     Active Substance: LAPATINIB DITOSYLATE
     Indication: BREAST CANCER
     Dosage: 1500 MG, QD
     Route: 048
     Dates: start: 20090804, end: 20090831
  3. HERCEPTIN [Concomitant]
     Active Substance: TRASTUZUMAB
     Dosage: INITIAL DOSE: 8MG/KG, FROM SECOND DOSE: 6MG/KG
     Dates: start: 20090929, end: 20100316

REACTIONS (1)
  - Gastric cancer [Not Recovered/Not Resolved]

NARRATIVE: CASE EVENT DATE: 20150512
